FAERS Safety Report 7390666-9 (Version None)
Quarter: 2011Q2

REPORT INFORMATION
  Report Type: 
  Country: None (occurrence: None)
  Receive Date: 20110404
  Receipt Date: 20110325
  Transmission Date: 20111010
  Serious: No
  Sender: FDA-Public Use
  Company Number: US-BIOGENIDEC-2010BI044690

PATIENT
  Age: 41 Year
  Sex: Female

DRUGS (1)
  1. TYSABRI [Suspect]
     Indication: MULTIPLE SCLEROSIS
     Route: 042
     Dates: start: 20100607

REACTIONS (6)
  - DIZZINESS [None]
  - FATIGUE [None]
  - PNEUMONIA [None]
  - MUSCLE SPASMS [None]
  - HEADACHE [None]
  - MEMORY IMPAIRMENT [None]
